FAERS Safety Report 6552863-1 (Version None)
Quarter: 2010Q1

REPORT INFORMATION
  Report Type: 
  Country: None (occurrence: None)
  Receive Date: 20100126
  Receipt Date: 20100115
  Transmission Date: 20100710
  Serious: Yes (Congenital Anomaly)
  Sender: FDA-Public Use
  Company Number: BR-GILEAD-2010-0026512

PATIENT
  Sex: Female
  Weight: 9 kg

DRUGS (2)
  1. VIREAD [Suspect]
     Indication: HIV INFECTION
     Route: 048
     Dates: start: 20080615, end: 20080620
  2. ZIDOVUDINE [Concomitant]
     Indication: PROPHYLAXIS AGAINST HIV INFECTION
     Dates: start: 20080615

REACTIONS (1)
  - DOUBLE URETER [None]
